FAERS Safety Report 12299886 (Version 1)
Quarter: 2016Q2

REPORT INFORMATION
  Report Type: Report from Study
  Country: DE (occurrence: DE)
  Receive Date: 20160425
  Receipt Date: 20160425
  Transmission Date: 20160815
  Serious: Yes (Hospitalization)
  Sender: FDA-Public Use
  Company Number: DE-ROCHE-1420776

PATIENT
  Age: 51 Year
  Sex: Female
  Weight: 120 kg

DRUGS (10)
  1. BEVACIZUMAB [Suspect]
     Active Substance: BEVACIZUMAB
     Route: 042
     Dates: start: 20141006
  2. PACLITAXEL. [Suspect]
     Active Substance: PACLITAXEL
     Indication: OVARIAN CANCER
     Dosage: LAST DOSE GIVEN PRIOR TO SAE WAS GIVEN ON 13/JUN/2014.
     Route: 042
     Dates: start: 20140613
  3. XELEVIA [Concomitant]
     Active Substance: SITAGLIPTIN PHOSPHATE
     Indication: DIABETES MELLITUS
     Dosage: DATE OF LAST DOSE PRIOR TO SAE 10/JUN/2014
     Route: 048
  4. BEVACIZUMAB [Suspect]
     Active Substance: BEVACIZUMAB
     Indication: OVARIAN CANCER
     Route: 042
     Dates: start: 20140722
  5. CARBOPLATIN. [Suspect]
     Active Substance: CARBOPLATIN
     Indication: OVARIAN CANCER
     Dosage: (AUC 5), LAST DOSE GIVEN PRIOR TO SAE WAS ON 13/JUN/2014
     Route: 042
     Dates: start: 20140613
  6. METFORMIN [Concomitant]
     Active Substance: METFORMIN HYDROCHLORIDE
     Indication: DIABETES MELLITUS
     Dosage: DATE OF LAST DOSE PRIOR TO SAE 13/JUN/2014
     Route: 048
  7. PACLITAXEL. [Suspect]
     Active Substance: PACLITAXEL
     Dosage: 279.45--386.75 MG
     Route: 042
     Dates: start: 20140722
  8. PANTOPRAZOL [Concomitant]
     Active Substance: PANTOPRAZOLE SODIUM
     Indication: PROPHYLAXIS
     Route: 048
  9. CARBOPLATIN. [Suspect]
     Active Substance: CARBOPLATIN
     Dosage: 1025-1145.85 MG
     Route: 042
     Dates: start: 20140722
  10. AQUAPHOR [Concomitant]
     Active Substance: PETROLATUM
     Route: 048

REACTIONS (5)
  - Thrombocytopenia [Recovered/Resolved]
  - Infection [Unknown]
  - Sepsis [Recovering/Resolving]
  - Anaemia [Recovered/Resolved]
  - Dyspnoea [Recovering/Resolving]

NARRATIVE: CASE EVENT DATE: 20140702
